FAERS Safety Report 10345091 (Version 1)
Quarter: 2014Q3

REPORT INFORMATION
  Report Type: Spontaneous
  Country: US (occurrence: US)
  Receive Date: 20140728
  Receipt Date: 20140728
  Transmission Date: 20150326
  Serious: Yes (Other)
  Sender: FDA-Public Use
  Company Number: US-BEH-2014043993

PATIENT
  Sex: Female
  Weight: 85 kg

DRUGS (27)
  1. LIDOCAINE. [Concomitant]
     Active Substance: LIDOCAINE
  2. LIDOCAINE/PRILOCAINE [Concomitant]
  3. FERROUS SULFATE [Concomitant]
     Active Substance: FERROUS SULFATE\FERROUS SULFATE, DRIED
  4. MULTIVITAMINA [Concomitant]
  5. NORCO [Concomitant]
     Active Substance: ACETAMINOPHEN\HYDROCODONE BITARTRATE
  6. ASPIRIN. [Concomitant]
     Active Substance: ASPIRIN
  7. LEVOTHYROXINE [Concomitant]
     Active Substance: LEVOTHYROXINE
  8. IBUPROFEN. [Concomitant]
     Active Substance: IBUPROFEN
  9. FOSAMAX [Concomitant]
     Active Substance: ALENDRONATE SODIUM
  10. CELEXA [Concomitant]
     Active Substance: CITALOPRAM HYDROBROMIDE
  11. XOPENEX [Concomitant]
     Active Substance: LEVALBUTEROL HYDROCHLORIDE
  12. DIPHENHYDRAMINE [Concomitant]
     Active Substance: DIPHENHYDRAMINE
  13. FUROSEMIDE. [Concomitant]
     Active Substance: FUROSEMIDE
  14. HIZENTRA [Suspect]
     Active Substance: HUMAN IMMUNOGLOBULIN G
     Indication: IMMUNODEFICIENCY COMMON VARIABLE
     Dosage: 2 SITES OVER 1-2 HOURS
     Route: 058
  15. ACETAMINOPHEN. [Concomitant]
     Active Substance: ACETAMINOPHEN
  16. CALCIUM 500 + D [Concomitant]
     Active Substance: CALCIUM\VITAMIN D
  17. ZONISAMIDE. [Concomitant]
     Active Substance: ZONISAMIDE
  18. ALBUTEROL. [Concomitant]
     Active Substance: ALBUTEROL
  19. SPIRIVA [Concomitant]
     Active Substance: TIOTROPIUM BROMIDE MONOHYDRATE
  20. ALBUTEROL. [Concomitant]
     Active Substance: ALBUTEROL
  21. AMLODIPINE [Concomitant]
     Active Substance: AMLODIPINE BESYLATE
  22. HYDROCODONE-APAP [Concomitant]
     Active Substance: ACETAMINOPHEN\HYDROCODONE
  23. EPIPEN [Concomitant]
     Active Substance: EPINEPHRINE
  24. COLACE [Concomitant]
     Active Substance: DOCUSATE SODIUM
  25. POTASSIUM CL [Concomitant]
     Active Substance: POTASSIUM CHLORIDE
  26. PROTONIX [Concomitant]
     Active Substance: PANTOPRAZOLE SODIUM
  27. SYMBICORT [Concomitant]
     Active Substance: BUDESONIDE\FORMOTEROL FUMARATE DIHYDRATE

REACTIONS (2)
  - Pneumonia [Unknown]
  - Pyrexia [Unknown]
